FAERS Safety Report 8629471 (Version 2)
Quarter: 2013Q4

REPORT INFORMATION
  Report Type: Spontaneous
  Country: US (occurrence: US)
  Receive Date: 20120622
  Receipt Date: 20131011
  Transmission Date: 20140711
  Serious: Yes (Hospitalization, Disabling, Other)
  Sender: FDA-Public Use
  Company Number: US-ASTRAZENECA-2012SE35646

PATIENT
  Age: 54 Year
  Sex: Male

DRUGS (15)
  1. NEXIUM [Suspect]
     Indication: GASTRITIS PROPHYLAXIS
     Route: 048
     Dates: start: 1998, end: 200902
  2. PRILOSEC [Suspect]
     Route: 048
  3. PROTONIX [Suspect]
     Route: 065
  4. ZANTAC [Concomitant]
     Indication: ULCER
  5. TAGAMET [Concomitant]
  6. TUMS [Concomitant]
  7. ALKA SELTZER [Concomitant]
  8. MIDODRINE HCL [Concomitant]
     Indication: HYPOTENSION
  9. RENVELA [Concomitant]
     Indication: RENAL TUBULAR ACIDOSIS
  10. SIMVASTATIN [Concomitant]
     Indication: BLOOD CHOLESTEROL ABNORMAL
  11. SENSPAR [Concomitant]
     Indication: HYPERPARATHYROIDISM
  12. ACTOS [Concomitant]
     Indication: DIABETES MELLITUS
  13. ZYRTEC [Concomitant]
     Indication: ALLERGIC SINUSITIS
  14. AVANDIA [Concomitant]
     Indication: DIABETES MELLITUS
  15. PEPCID [Concomitant]

REACTIONS (12)
  - Multiple fractures [Unknown]
  - Ankle fracture [Unknown]
  - Femur fracture [Unknown]
  - Arthropathy [Unknown]
  - Fall [Unknown]
  - Haemorrhage [Unknown]
  - Osteoarthritis [Unknown]
  - Osteoporosis [Unknown]
  - Calcium deficiency [Unknown]
  - Cataract [Unknown]
  - Glaucoma [Unknown]
  - Peripheral arterial occlusive disease [Unknown]
